FAERS Safety Report 17855774 (Version 2)
Quarter: 2020Q2

REPORT INFORMATION
  Report Type: Spontaneous
  Country: US (occurrence: US)
  Receive Date: 20200603
  Receipt Date: 20200611
  Transmission Date: 20200714
  Serious: Yes (Other)
  Sender: FDA-Public Use
  Company Number: US-RECKITT BENCKISER HEALTHCARE INT LIMITED-RB-87806-2020

PATIENT
  Age: 54 Year
  Sex: Male

DRUGS (3)
  1. MUCINEX [Suspect]
     Active Substance: GUAIFENESIN
     Indication: INFLUENZA
  2. MUCINEX [Suspect]
     Active Substance: GUAIFENESIN
     Indication: BREATH SOUNDS ABNORMAL
  3. MUCINEX [Suspect]
     Active Substance: GUAIFENESIN
     Indication: RESPIRATORY TRACT CONGESTION
     Dosage: UNK, (TOOK THE PRODUCT AFTER EVERY 4 HOURS, CONSUMED 1 WHOLE BOTTLE)
     Route: 065
     Dates: start: 20200526

REACTIONS (3)
  - Oropharyngeal pain [Recovered/Resolved]
  - Sputum discoloured [Recovered/Resolved]
  - Haemoptysis [Recovered/Resolved]

NARRATIVE: CASE EVENT DATE: 2020
